FAERS Safety Report 7516853-4 (Version None)
Quarter: 2011Q2

REPORT INFORMATION
  Report Type: 
  Country: None (occurrence: None)
  Receive Date: 20110526
  Receipt Date: 20110526
  Transmission Date: 20111010
  Serious: Yes (Hospitalization)
  Sender: FDA-Public Use
  Company Number: None

PATIENT
  Age: 2 Year
  Sex: Male
  Weight: 13.6 kg

DRUGS (1)
  1. SEVOFLURANE [Suspect]
     Indication: CIRCUMCISION
     Dates: start: 20110317, end: 20110317

REACTIONS (3)
  - METABOLIC ACIDOSIS [None]
  - RESPIRATORY ACIDOSIS [None]
  - HYPERTHERMIA MALIGNANT [None]
